FAERS Safety Report 6821632-7 (Version None)
Quarter: 2010Q3

REPORT INFORMATION
  Report Type: 
  Country: None (occurrence: None)
  Receive Date: 20100707
  Receipt Date: 20090616
  Transmission Date: 20110219
  Serious: No
  Sender: FDA-Public Use
  Company Number: US-PFIZER INC-2009203349

PATIENT

DRUGS (2)
  1. ZOLOFT [Suspect]
     Dosage: 25 MG, UNK
     Dates: start: 20090417
  2. ZOLOFT [Suspect]
     Dosage: 50 MG, UNK
     Dates: start: 20090401

REACTIONS (2)
  - DIARRHOEA [None]
  - NAUSEA [None]
